FAERS Safety Report 11579405 (Version 1)
Quarter: 2015Q3

REPORT INFORMATION
  Report Type: Report from Study
  Country: IN (occurrence: IN)
  Receive Date: 20150930
  Receipt Date: 20150930
  Transmission Date: 20151125
  Serious: Yes (Death)
  Sender: FDA-Public Use
  Company Number: PHHY2015IN117414

PATIENT
  Age: 72 Year
  Sex: Male
  Weight: 65 kg

DRUGS (1)
  1. NEORAL [Suspect]
     Active Substance: CYCLOSPORINE
     Indication: RENAL TRANSPLANT
     Dosage: 75 OT, BID
     Route: 048
     Dates: start: 2007, end: 20150906

REACTIONS (1)
  - Death [Fatal]

NARRATIVE: CASE EVENT DATE: 20150907
